FAERS Safety Report 12172416 (Version 2)
Quarter: 2016Q1

REPORT INFORMATION
  Report Type: Spontaneous
  Country: JP (occurrence: JP)
  Receive Date: 20160311
  Receipt Date: 20160315
  Transmission Date: 20160526
  Serious: Yes (Life-Threatening, Other)
  Sender: FDA-Public Use
  Company Number: JP-BAYER-2016-044489

PATIENT
  Age: 54 Year
  Sex: Female

DRUGS (3)
  1. MORPHINE HYDROCHLORIDE [Concomitant]
     Active Substance: MORPHINE HYDROCHLORIDE
     Dosage: UNK
  2. MAGNEVIST [Suspect]
     Active Substance: GADOPENTETATE DIMEGLUMINE
     Indication: NUCLEAR MAGNETIC RESONANCE IMAGING
     Dosage: 10 ML, ONCE
     Route: 042
     Dates: start: 20160303, end: 20160303
  3. MAGNEVIST [Suspect]
     Active Substance: GADOPENTETATE DIMEGLUMINE
     Indication: METASTASIS

REACTIONS (5)
  - Dyspnoea [Recovered/Resolved]
  - PO2 decreased [Recovered/Resolved]
  - Cough [None]
  - Rash [Recovered/Resolved]
  - Nausea [None]

NARRATIVE: CASE EVENT DATE: 20160303
